FAERS Safety Report 10049502 (Version 1)
Quarter: 2014Q1

REPORT INFORMATION
  Report Type: Spontaneous
  Country: US (occurrence: None)
  Receive Date: 20140331
  Receipt Date: 20140331
  Transmission Date: 20141002
  Serious: Yes (Death, Life-Threatening, Hospitalization, Disabling, Other)
  Sender: FDA-Public Use
  Company Number: None

PATIENT
  Sex: Female

DRUGS (2)
  1. ACYCLOVIR [Suspect]
     Indication: ENCEPHALITIS
     Dosage: 2 CAPSULES
     Route: 048
  2. ACYCLOVIR [Suspect]
     Indication: ORAL HERPES
     Dosage: 2 CAPSULES
     Route: 048

REACTIONS (1)
  - Death [None]
